FAERS Safety Report 6853462-4 (Version None)
Quarter: 2010Q3

REPORT INFORMATION
  Report Type: 
  Country: None (occurrence: None)
  Receive Date: 20100717
  Receipt Date: 20071206
  Transmission Date: 20110219
  Serious: No
  Sender: FDA-Public Use
  Company Number: US-PFIZER INC-2007103838

PATIENT
  Sex: Male
  Weight: 73.2 kg

DRUGS (11)
  1. CHANTIX [Suspect]
     Indication: SMOKING CESSATION THERAPY
     Dates: start: 20070301
  2. NEURONTIN [Concomitant]
     Indication: TREMOR
  3. ACETYLSALICYLIC ACID [Concomitant]
  4. LIPITOR [Concomitant]
  5. PRILOSEC [Concomitant]
  6. PLAVIX [Concomitant]
  7. ENALAPRIL MALEATE [Concomitant]
  8. CARVEDILOL [Concomitant]
  9. WARFARIN SODIUM [Concomitant]
  10. FISH OIL [Concomitant]
  11. GLYCERYL TRINITRATE [Concomitant]

REACTIONS (2)
  - ENERGY INCREASED [None]
  - PERSONALITY CHANGE [None]
